FAERS Safety Report 7038046-X (Version None)
Quarter: 2010Q4

REPORT INFORMATION
  Report Type: 
  Country: None (occurrence: None)
  Receive Date: 20101011
  Receipt Date: 20101006
  Transmission Date: 20110411
  Serious: Yes (Other)
  Sender: FDA-Public Use
  Company Number: US-PFIZER INC-2010094980

PATIENT
  Sex: Male
  Weight: 88.435 kg

DRUGS (4)
  1. CHANTIX [Suspect]
     Indication: SMOKING CESSATION THERAPY
     Dosage: 0.5 MG, 1X/DAY
     Route: 048
     Dates: start: 20100720, end: 20100701
  2. CHANTIX [Suspect]
     Dosage: 0.5 MG, 2X/DAY
     Route: 048
     Dates: start: 20100701, end: 20100701
  3. CHANTIX [Suspect]
     Dosage: UNK
     Route: 048
     Dates: start: 20100701
  4. RAMIPRIL [Concomitant]
     Indication: HYPERTENSION
     Dosage: UNK

REACTIONS (5)
  - FEAR [None]
  - NERVOUSNESS [None]
  - OEDEMA MOUTH [None]
  - SKIN EXFOLIATION [None]
  - STOMATITIS [None]
